FAERS Safety Report 9661787 (Version 1)
Quarter: 2013Q4

REPORT INFORMATION
  Report Type: Spontaneous
  Country: US (occurrence: US)
  Receive Date: 20131031
  Receipt Date: 20131031
  Transmission Date: 20140711
  Serious: No
  Sender: FDA-Public Use
  Company Number: US-PURDUE-USA-2010-0056098

PATIENT
  Sex: Male

DRUGS (3)
  1. OXYCONTIN (NDA 22-272) [Suspect]
     Indication: BACK PAIN
     Dosage: 80 MG, TID
  2. OXYCONTIN (NDA 22-272) [Suspect]
     Indication: ARTHRALGIA
  3. OXYCONTIN (NDA 22-272) [Suspect]
     Indication: ARTHRALGIA

REACTIONS (8)
  - Increased upper airway secretion [Unknown]
  - Cough [Unknown]
  - Drug ineffective [Unknown]
  - Product quality issue [Unknown]
  - Vomiting [Unknown]
  - Headache [Unknown]
  - Constipation [Unknown]
  - Malaise [Unknown]
